FAERS Safety Report 8718967 (Version 2)
Quarter: 2013Q4

REPORT INFORMATION
  Report Type: Spontaneous
  Country: US (occurrence: US)
  Receive Date: 20120811
  Receipt Date: 20131101
  Transmission Date: 20140711
  Serious: No
  Sender: FDA-Public Use
  Company Number: US-009507513-1208USA003184

PATIENT
  Age: 21 Year
  Sex: Female
  Weight: 56.69 kg

DRUGS (2)
  1. NUVARING [Suspect]
     Indication: CONTRACEPTION
     Dosage: 3 WEEK IN, 1 WEEK OUT
     Route: 067
     Dates: start: 2009
  2. DIGESTIVE ADVANTAGE CROHNS AND COLITIS THERAPY [Concomitant]

REACTIONS (2)
  - Burning sensation [Unknown]
  - Device breakage [Unknown]
